FAERS Safety Report 9366592 (Version 2)
Quarter: 2013Q3

REPORT INFORMATION
  Report Type: Spontaneous
  Country: US (occurrence: US)
  Receive Date: 20130625
  Receipt Date: 20130726
  Transmission Date: 20140515
  Serious: Yes (Other)
  Sender: FDA-Public Use
  Company Number: US-COVIDIEN/TYCO HEALTHCARE/MALLINCKRODT-T201303392

PATIENT
  Age: 3 Year
  Sex: Male

DRUGS (2)
  1. KIT FOR THE PREPARATION OF TECHNETIUM (TC-99M) SESTAMIBI INJECTION [Suspect]
     Indication: SCAN PARATHYROID
     Dosage: 10 ML, SINGLE
     Route: 042
     Dates: start: 20130614, end: 20130614
  2. ULTRA-TECHNEKOW DTE GENERATOR [Suspect]
     Dosage: UNK
     Dates: start: 20130614, end: 20130614

REACTIONS (2)
  - Lethargy [Recovered/Resolved]
  - Sedation [Recovered/Resolved]
